FAERS Safety Report 8947886 (Version 1)
Quarter: 2012Q4

REPORT INFORMATION
  Report Type: 
  Country: US (occurrence: US)
  Receive Date: 20121204
  Receipt Date: 20121204
  Transmission Date: 20130627
  Serious: Yes (Other)
  Sender: FDA-Public Use
  Company Number: US-PFIZER INC-2005069675

PATIENT
  Age: 56 Year
  Sex: Male
  Weight: 88.45 kg

DRUGS (7)
  1. NEURONTIN [Suspect]
     Indication: DIABETIC NEUROPATHY
     Dosage: 100 mg, 3x/day
     Route: 048
     Dates: start: 2004
  2. NEURONTIN [Suspect]
     Dosage: 400 mg, 3x/day
     Route: 048
  3. NEURONTIN [Suspect]
     Dosage: 600 mg, daily
     Route: 048
  4. NEURONTIN [Suspect]
     Dosage: UNK
     Route: 048
     Dates: start: 20050429
  5. CYMBALTA [Suspect]
     Indication: DIABETIC NEUROPATHY
     Route: 065
  6. TEGRETOL [Suspect]
     Dosage: 100mg at bedtime
  7. ZOLOFT [Concomitant]
     Dosage: UNK
     Route: 048

REACTIONS (7)
  - Hepatitis C [Unknown]
  - Drug ineffective [Not Recovered/Not Resolved]
  - Pain [Not Recovered/Not Resolved]
  - Somnolence [Unknown]
  - Restless legs syndrome [Not Recovered/Not Resolved]
  - Urinary tract disorder [Unknown]
  - Sciatica [Not Recovered/Not Resolved]
